FAERS Safety Report 14532335 (Version 1)
Quarter: 2018Q1

REPORT INFORMATION
  Report Type: Report from Study
  Country: US (occurrence: US)
  Receive Date: 20180214
  Receipt Date: 20180214
  Transmission Date: 20180509
  Serious: Yes (Hospitalization, Other)
  Sender: FDA-Public Use
  Company Number: US-BRISTOL-MYERS SQUIBB COMPANY-BMS-2017-109890

PATIENT
  Age: 72 Year
  Sex: Female
  Weight: 66.9 kg

DRUGS (20)
  1. CABIRALIZUMAB [Suspect]
     Active Substance: CABIRALIZUMAB
     Indication: OVARIAN CANCER METASTATIC
     Dosage: 4 MG/KG=300.4 MG
     Route: 042
     Dates: start: 20161201
  2. NORCO [Concomitant]
     Active Substance: ACETAMINOPHEN\HYDROCODONE BITARTRATE
     Indication: ARTHRALGIA
     Dosage: 325 MG, PRN
     Route: 048
     Dates: start: 201507, end: 201705
  3. METFORMIN [Concomitant]
     Active Substance: METFORMIN HYDROCHLORIDE
     Indication: DIABETES MELLITUS
     Dosage: 500 MG, BID
     Route: 048
     Dates: start: 2006
  4. HYDROCHLOROTHIAZIDE. [Concomitant]
     Active Substance: HYDROCHLOROTHIAZIDE
     Indication: HYPERTENSION
     Dosage: 25 MG, QD
     Route: 048
     Dates: start: 20161221
  5. CARVEDILOL. [Concomitant]
     Active Substance: CARVEDILOL
     Indication: HYPERTENSION
     Dosage: 25 MG, QD
     Route: 048
     Dates: start: 20170302
  6. ATORVASTATIN [Concomitant]
     Active Substance: ATORVASTATIN
     Indication: HYPERLIPIDAEMIA
     Dosage: 20 MG, QHS
     Route: 048
     Dates: start: 2009
  7. ACETAMINOPHEN. [Concomitant]
     Active Substance: ACETAMINOPHEN
     Indication: HEADACHE
     Dosage: 500 MG, PRN
     Route: 048
     Dates: start: 20161101
  8. LOSARTAN. [Concomitant]
     Active Substance: LOSARTAN
     Indication: HYPERTENSION
     Dosage: 100 MG, QD
     Route: 048
     Dates: start: 2007
  9. CLONIDINE. [Concomitant]
     Active Substance: CLONIDINE
     Indication: HYPERTENSION
     Dosage: 0.1 MG, PRN
     Route: 048
     Dates: start: 20170302
  10. ATENOLOL. [Concomitant]
     Active Substance: ATENOLOL
     Indication: HYPERTENSION
     Dosage: 100 MG, QD
     Route: 048
     Dates: start: 2008
  11. CALCIUM [Concomitant]
     Active Substance: CALCIUM
     Indication: ADVERSE EVENT
     Dosage: 500 MG, BID
     Route: 048
     Dates: start: 2008
  12. VITAMIN D3 [Concomitant]
     Active Substance: CHOLECALCIFEROL
     Indication: ADVERSE EVENT
     Dosage: 400 MG, QD
     Route: 048
     Dates: start: 2008
  13. ALPHA LIPOIC ACID [Concomitant]
     Active Substance: .ALPHA.-LIPOIC ACID
     Indication: NEUROPATHY PERIPHERAL
     Dosage: 300 MG, BID
     Route: 048
     Dates: start: 201507
  14. BENADRYL [Concomitant]
     Active Substance: DIPHENHYDRAMINE HYDROCHLORIDE
     Indication: RASH
     Dosage: 12.5 MG, UNK
     Route: 048
     Dates: start: 20170208
  15. AMLODIPINE [Concomitant]
     Active Substance: AMLODIPINE BESYLATE
     Indication: HYPERTENSION
     Dosage: 10 MG, QD
     Route: 048
     Dates: start: 20161206
  16. VITAMIN B6 [Concomitant]
     Active Substance: PYRIDOXINE HYDROCHLORIDE
     Indication: NEUROPATHY PERIPHERAL
     Dosage: 1 DF: 1 PILL, BID
     Route: 048
     Dates: start: 201507
  17. AMLODIPINE [Concomitant]
     Active Substance: AMLODIPINE BESYLATE
     Indication: PRODUCT USED FOR UNKNOWN INDICATION
     Dosage: 10 UNK, UNK
     Route: 048
     Dates: start: 20161206
  18. NIVOLUMAB [Suspect]
     Active Substance: NIVOLUMAB
     Indication: OVARIAN CANCER METASTATIC
     Dosage: 3 MG/KG=225.3 MG, Q2WK
     Route: 042
     Dates: start: 20161201
  19. ALENDRONATE [Concomitant]
     Active Substance: ALENDRONATE SODIUM
     Indication: OSTEOPOROSIS
     Dosage: 70 MG, QWK
     Route: 048
     Dates: start: 2011
  20. GLUTAMINE [Concomitant]
     Active Substance: GLUTAMINE
     Indication: NEUROPATHY PERIPHERAL
     Dosage: 1 DF, BID
     Route: 048
     Dates: start: 201507

REACTIONS (1)
  - Cardiac failure congestive [Recovered/Resolved with Sequelae]

NARRATIVE: CASE EVENT DATE: 20171130
